FAERS Safety Report 25008618 (Version 1)
Quarter: 2025Q1

REPORT INFORMATION
  Report Type: Spontaneous
  Country: US (occurrence: US)
  Receive Date: 20250225
  Receipt Date: 20250225
  Transmission Date: 20250409
  Serious: Yes (Hospitalization)
  Sender: MYLAN
  Company Number: US-MYLANLABS-2025M1015656

PATIENT
  Age: 37 Year
  Sex: Male

DRUGS (5)
  1. DOXORUBICIN [Suspect]
     Active Substance: DOXORUBICIN
     Indication: Testicular germ cell tumour
  2. DOCETAXEL [Suspect]
     Active Substance: DOCETAXEL
     Indication: Testicular germ cell tumour
  3. PACLITAXEL [Suspect]
     Active Substance: PACLITAXEL
     Indication: Testicular germ cell tumour
  4. IFOSFAMIDE [Suspect]
     Active Substance: IFOSFAMIDE
     Indication: Testicular germ cell tumour
  5. CISPLATIN [Suspect]
     Active Substance: CISPLATIN
     Indication: Testicular germ cell tumour

REACTIONS (3)
  - Treatment failure [Unknown]
  - Disease progression [Unknown]
  - Off label use [Unknown]
